FAERS Safety Report 6440834 (Version 3)
Quarter: 2019Q1

REPORT INFORMATION
  Report Type: Spontaneous
  Country: GB (occurrence: GB)
  Receive Date: 20071012
  Receipt Date: 20190114
  Transmission Date: 20190418
  Serious: Yes (Other)
  Sender: FDA-Public Use
  Company Number: GB-AVENTIS-200719104GDDC

PATIENT
  Age: 57 Year
  Sex: Female

DRUGS (6)
  1. FLUCONAZOLE. [Suspect]
     Active Substance: FLUCONAZOLE
     Dosage: 100 MG,UNK
     Route: 048
     Dates: start: 20070705
  2. FUROSEMIDE. [Concomitant]
     Active Substance: FUROSEMIDE
     Indication: HYPERTENSION
     Dosage: UNK
  3. CAPECITABINE. [Suspect]
     Active Substance: CAPECITABINE
     Indication: BREAST CANCER METASTATIC
     Dosage: 2500 MG,BID
     Route: 065
     Dates: start: 20070517
  4. TAXOTERE [Suspect]
     Active Substance: DOCETAXEL
     Indication: BREAST CANCER METASTATIC
     Dosage: 75 MG/M2,Q3W
     Route: 042
     Dates: start: 20070517
  5. CAPECITABINE. [Suspect]
     Active Substance: CAPECITABINE
     Dosage: 4 DF
     Route: 048
  6. NEUPOGEN [Concomitant]
     Active Substance: FILGRASTIM
     Indication: ARTHRITIS
     Dosage: 480MCG DAILY 4 TIMES WITH EACH CAPCITABINE THERAPY.
     Route: 058
     Dates: start: 20070524

REACTIONS (21)
  - Abdominal pain [Recovered/Resolved]
  - Fatigue [Not Recovered/Not Resolved]
  - Nausea [Recovered/Resolved]
  - Pain [Not Recovered/Not Resolved]
  - Rash [Not Recovered/Not Resolved]
  - Vulvovaginal mycotic infection [Recovered/Resolved]
  - White blood cell count decreased [Not Recovered/Not Resolved]
  - Fungal infection [Recovering/Resolving]
  - Rhinitis [Recovering/Resolving]
  - Tongue coated [Recovering/Resolving]
  - Palmar-plantar erythrodysaesthesia syndrome [Recovering/Resolving]
  - Onycholysis [Not Recovered/Not Resolved]
  - Vomiting [Recovered/Resolved]
  - Drooling [Unknown]
  - Pyrexia [Recovering/Resolving]
  - Abdominal pain [Recovering/Resolving]
  - Lacrimation increased [Not Recovered/Not Resolved]
  - Diarrhoea [Recovered/Resolved]
  - Hypoaesthesia [Recovering/Resolving]
  - Hypotension [Not Recovered/Not Resolved]
  - Skin exfoliation [Recovering/Resolving]

NARRATIVE: CASE EVENT DATE: 20070524
